FAERS Safety Report 7584488-3 (Version None)
Quarter: 2011Q2

REPORT INFORMATION
  Report Type: 
  Country: None (occurrence: None)
  Receive Date: 20110630
  Receipt Date: 20110622
  Transmission Date: 20111010
  Serious: Yes (Disabling, Other)
  Sender: FDA-Public Use
  Company Number: GB-ALLERGAN-1014648US

PATIENT
  Age: 3 Year
  Sex: Female

DRUGS (1)
  1. LUMIGAN [Suspect]
     Indication: DEVELOPMENTAL GLAUCOMA
     Dosage: UNK
     Route: 047
     Dates: start: 20070607, end: 20091124

REACTIONS (3)
  - BLINDNESS [None]
  - CHOROIDAL EFFUSION [None]
  - RETINAL DETACHMENT [None]
